FAERS Safety Report 23182354 (Version 1)
Quarter: 2023Q4

REPORT INFORMATION
  Report Type: Spontaneous
  Country: CN (occurrence: CN)
  Receive Date: 20231114
  Receipt Date: 20231114
  Transmission Date: 20240110
  Serious: Yes (Hospitalization)
  Sender: FDA-Public Use
  Company Number: CN-009507513-2311CHN001484

PATIENT
  Age: 50 Year
  Sex: Male
  Weight: 74 kg

DRUGS (2)
  1. JANUMET [Suspect]
     Active Substance: METFORMIN HYDROCHLORIDE\SITAGLIPTIN PHOSPHATE
     Indication: Blood glucose increased
     Dosage: UNK
     Route: 048
  2. JANUMET [Suspect]
     Active Substance: METFORMIN HYDROCHLORIDE\SITAGLIPTIN PHOSPHATE
     Dosage: 1 TABLET, BID, ORAL
     Route: 048
     Dates: start: 20231016, end: 20231017

REACTIONS (6)
  - Blood glucose fluctuation [Unknown]
  - Dizziness [Unknown]
  - Fatigue [Unknown]
  - Faeces discoloured [Recovering/Resolving]
  - Frequent bowel movements [Recovering/Resolving]
  - Diarrhoea [Recovering/Resolving]

NARRATIVE: CASE EVENT DATE: 20231017
